FAERS Safety Report 6166295-1 (Version None)
Quarter: 2009Q2

REPORT INFORMATION
  Report Type: 
  Country: None (occurrence: None)
  Receive Date: 20090422
  Receipt Date: 20090422
  Transmission Date: 20091009
  Serious: Yes (Other)
  Sender: FDA-Public Use
  Company Number: None

PATIENT
  Sex: Female
  Weight: 57.6068 kg

DRUGS (3)
  1. REMICADE [Suspect]
     Indication: RHEUMATOID ARTHRITIS
     Dates: start: 20090204
  2. REMICADE [Suspect]
     Indication: RHEUMATOID ARTHRITIS
     Dates: start: 20090309
  3. REMICADE [Suspect]
     Indication: RHEUMATOID ARTHRITIS
     Dates: start: 20090330

REACTIONS (6)
  - BACK PAIN [None]
  - CHEST PAIN [None]
  - DYSPNOEA [None]
  - FEELING ABNORMAL [None]
  - HYPERTENSION [None]
  - SPEECH DISORDER [None]
